FAERS Safety Report 13795675 (Version 2)
Quarter: 2017Q3

REPORT INFORMATION
  Report Type: Not Available
  Country: US (occurrence: US)
  Receive Date: 20170726
  Receipt Date: 20170921
  Transmission Date: 20171127
  Serious: No
  Sender: FDA-Public Use
  Company Number: US-NEUROCRINE BIOSCIENCES INC.-2017NBI00298

PATIENT
  Age: 54 Year
  Sex: Male
  Weight: 83.54 kg

DRUGS (10)
  1. CALCIUM WITH VITAMIN D [Concomitant]
     Active Substance: CALCIUM\VITAMIN D
  2. INGREZZA [Suspect]
     Active Substance: VALBENAZINE
     Indication: TARDIVE DYSKINESIA
     Route: 048
     Dates: start: 20170603, end: 20170609
  3. INGREZZA [Suspect]
     Active Substance: VALBENAZINE
     Route: 048
     Dates: start: 20170610
  4. GEODON [Concomitant]
     Active Substance: ZIPRASIDONE HYDROCHLORIDE\ZIPRASIDONE MESYLATE
  5. LORAZEPAM. [Concomitant]
     Active Substance: LORAZEPAM
  6. MULTIVITAMIN [Concomitant]
     Active Substance: VITAMINS
  7. VITAMIN E [Concomitant]
     Active Substance: .ALPHA.-TOCOPHEROL
  8. INGREZZA [Suspect]
     Active Substance: VALBENAZINE
  9. HALDOL [Concomitant]
     Active Substance: HALOPERIDOL
  10. PAXIL [Concomitant]
     Active Substance: PAROXETINE HYDROCHLORIDE

REACTIONS (7)
  - Hangover [Unknown]
  - Abnormal behaviour [Unknown]
  - Logorrhoea [Unknown]
  - Headache [Recovering/Resolving]
  - Tremor [Not Recovered/Not Resolved]
  - Lethargy [Unknown]
  - Somnolence [Not Recovered/Not Resolved]

NARRATIVE: CASE EVENT DATE: 201706
